FAERS Safety Report 5131482-8 (Version None)
Quarter: 2006Q4

REPORT INFORMATION
  Report Type: 
  Country: None (occurrence: None)
  Receive Date: 20061020
  Receipt Date: 20060919
  Transmission Date: 20070319
  Serious: Yes (Death, Hospitalization)
  Sender: FDA-Public Use
  Company Number: LT-SANOFI-SYNTHELABO-A01200607743

PATIENT
  Sex: Male

DRUGS (3)
  1. ISODINIT [Concomitant]
     Indication: DRUG USE FOR UNKNOWN INDICATION
     Route: 048
  2. VERAPAMIL [Concomitant]
     Indication: DRUG USE FOR UNKNOWN INDICATION
     Dosage: UNK
     Route: 065
  3. PLAVIX [Suspect]
     Indication: MYOCARDIAL INFARCTION
     Route: 048
     Dates: start: 20060901, end: 20060916

REACTIONS (4)
  - GASTROINTESTINAL NECROSIS [None]
  - HAEMORRHAGE [None]
  - INTESTINAL GANGRENE [None]
  - THROMBOSIS [None]
